FAERS Safety Report 12971515 (Version 2)
Quarter: 2016Q4

REPORT INFORMATION
  Report Type: Spontaneous
  Country: US (occurrence: US)
  Receive Date: 20161123
  Receipt Date: 20161128
  Transmission Date: 20170207
  Serious: No
  Sender: FDA-Public Use
  Company Number: US-JAZZ-2016-US-019031

PATIENT
  Sex: Female

DRUGS (18)
  1. XYREM [Suspect]
     Active Substance: SODIUM OXYBATE
     Indication: NARCOLEPSY
     Dosage: 2.25 G, BID
     Route: 048
     Dates: start: 201507, end: 201510
  2. MULTIVITAMINS                      /00116001/ [Concomitant]
  3. FUROSEMIDE. [Concomitant]
     Active Substance: FUROSEMIDE
  4. XYREM [Suspect]
     Active Substance: SODIUM OXYBATE
     Indication: CATAPLEXY
     Dosage: 3 G, BID
     Route: 048
     Dates: start: 201510
  5. LANTUS [Concomitant]
     Active Substance: INSULIN GLARGINE
  6. ZETIA [Concomitant]
     Active Substance: EZETIMIBE
  7. EFFEXOR [Concomitant]
     Active Substance: VENLAFAXINE HYDROCHLORIDE
  8. NEURONTIN [Concomitant]
     Active Substance: GABAPENTIN
  9. NUVIGIL [Concomitant]
     Active Substance: ARMODAFINIL
  10. POTASSIUM CHLORIDE. [Concomitant]
     Active Substance: POTASSIUM CHLORIDE
  11. VITAMIN C [Concomitant]
     Active Substance: ASCORBIC ACID
  12. HUMALOG [Concomitant]
     Active Substance: INSULIN LISPRO
  13. LISINOPRIL                         /00894002/ [Concomitant]
     Active Substance: LISINOPRIL
  14. NOVOLOG [Concomitant]
     Active Substance: INSULIN ASPART
  15. CALCIUM + VITAMIN D                /01483701/ [Concomitant]
     Active Substance: CALCIUM\VITAMIN D
  16. FISH OIL [Concomitant]
     Active Substance: FISH OIL
  17. ZINC GLUCONATE [Concomitant]
     Active Substance: ZINC GLUCONATE
  18. HYDROCHLOROTHIAZIDE. [Concomitant]
     Active Substance: HYDROCHLOROTHIAZIDE

REACTIONS (2)
  - Therapeutic response decreased [Unknown]
  - Memory impairment [Not Recovered/Not Resolved]
